FAERS Safety Report 9381718 (Version 1)
Quarter: 2013Q3

REPORT INFORMATION
  Report Type: Spontaneous
  Country: US (occurrence: US)
  Receive Date: 20130703
  Receipt Date: 20130703
  Transmission Date: 20140515
  Serious: Yes (Other)
  Sender: FDA-Public Use
  Company Number: US-PFIZER INC-2013193085

PATIENT
  Age: 79 Year
  Sex: Female
  Weight: 56.69 kg

DRUGS (2)
  1. TOVIAZ [Suspect]
     Indication: POLLAKIURIA
     Dosage: 4 MG, 1X/DAY
     Route: 048
     Dates: start: 20130623
  2. TOVIAZ [Suspect]
     Indication: URINARY INCONTINENCE

REACTIONS (4)
  - Bladder pain [Recovered/Resolved]
  - Dysstasia [Recovered/Resolved]
  - Middle insomnia [Unknown]
  - Drug ineffective [Unknown]
